FAERS Safety Report 20858157 (Version 12)
Quarter: 2023Q2

REPORT INFORMATION
  Report Type: Spontaneous
  Country: CA (occurrence: CA)
  Receive Date: 20220521
  Receipt Date: 20230510
  Transmission Date: 20230722
  Serious: Yes (Other)
  Sender: FDA-Public Use
  Company Number: CA-CELLTRION INC.-2022CA006263

PATIENT

DRUGS (17)
  1. INFLECTRA [Suspect]
     Active Substance: INFLIXIMAB-DYYB
     Indication: Crohn^s disease
     Dosage: 7 MG/KG WEEK 0,2,6 THEN Q 8 WEEK
     Route: 042
     Dates: start: 20220324
  2. INFLECTRA [Suspect]
     Active Substance: INFLIXIMAB-DYYB
     Dosage: 7 MG/KG WEEK 0,2,6 THEN Q 8 WEEK
     Route: 042
     Dates: start: 20220405
  3. INFLECTRA [Suspect]
     Active Substance: INFLIXIMAB-DYYB
     Dosage: 7 MG/KG WEEK 0,2,6 THEN Q8WEEKS
     Route: 042
     Dates: start: 20220505
  4. INFLECTRA [Suspect]
     Active Substance: INFLIXIMAB-DYYB
     Dosage: 7 MG/KG WEEK 0,2,6 THEN Q8WEEKS
     Route: 042
     Dates: start: 20220630
  5. INFLECTRA [Suspect]
     Active Substance: INFLIXIMAB-DYYB
     Dosage: 7 MG/KG WEEK 0,2,6 THEN Q8WEEKS
     Route: 042
     Dates: start: 20220826
  6. INFLECTRA [Suspect]
     Active Substance: INFLIXIMAB-DYYB
     Dosage: 7 MG/KG WEEK 0,2,6 THEN Q8WEEKS
     Route: 042
     Dates: start: 20221021
  7. INFLECTRA [Suspect]
     Active Substance: INFLIXIMAB-DYYB
     Dosage: 7 MG/KG WEEK 0,2,6 THEN Q8WEEKS
     Route: 042
     Dates: start: 20221216
  8. INFLECTRA [Suspect]
     Active Substance: INFLIXIMAB-DYYB
     Dosage: 7 MG/KG, EVERY 8 WEEKS (581MG)
     Route: 042
     Dates: start: 20230210
  9. INFLECTRA [Suspect]
     Active Substance: INFLIXIMAB-DYYB
     Dosage: 7 MG/KG, EVERY 8 WEEKS (581MG)
     Route: 042
     Dates: start: 20220324
  10. INFLECTRA [Suspect]
     Active Substance: INFLIXIMAB-DYYB
     Dosage: 7 MG/KG, EVERY 8 WEEKS
     Route: 042
     Dates: start: 20230404
  11. CALCIUM [Concomitant]
     Active Substance: CALCIUM
     Dosage: 1 DF
  12. CORTISONE [Concomitant]
     Active Substance: CORTISONE
     Dosage: UNK, STARTED AT HOSPITAL
     Route: 042
  13. CITALOPRAM [Concomitant]
     Active Substance: CITALOPRAM HYDROBROMIDE
     Dosage: 1 DF
  14. PANTOPRAZOLE SODIUM [Concomitant]
     Active Substance: PANTOPRAZOLE SODIUM
     Dosage: 1 DF
  15. PREDNISONE [Concomitant]
     Active Substance: PREDNISONE
     Dosage: 1 DF
  16. PREDNISONE [Concomitant]
     Active Substance: PREDNISONE
     Dosage: 50 MG, FOR 7 DAYS
  17. VIT D [VITAMIN D NOS] [Concomitant]
     Dosage: 1 DF

REACTIONS (21)
  - Intestinal resection [Recovering/Resolving]
  - Condition aggravated [Not Recovered/Not Resolved]
  - Crohn^s disease [Not Recovered/Not Resolved]
  - Abdominal pain [Recovering/Resolving]
  - Therapeutic product effect incomplete [Unknown]
  - Drug ineffective [Unknown]
  - Abdominal pain [Unknown]
  - Fatigue [Not Recovered/Not Resolved]
  - Headache [Not Recovered/Not Resolved]
  - Pyrexia [Unknown]
  - Malaise [Unknown]
  - Pain [Unknown]
  - Aphthous ulcer [Unknown]
  - Lymphadenopathy [Recovering/Resolving]
  - Throat lesion [Recovering/Resolving]
  - Nausea [Recovered/Resolved]
  - Vomiting [Recovered/Resolved]
  - Mouth ulceration [Unknown]
  - Hepatic enzyme increased [Not Recovered/Not Resolved]
  - Diarrhoea [Not Recovered/Not Resolved]
  - Inflammation [Not Recovered/Not Resolved]

NARRATIVE: CASE EVENT DATE: 20220101
